FAERS Safety Report 5702150-6 (Version None)
Quarter: 2008Q2

REPORT INFORMATION
  Report Type: 
  Country: None (occurrence: None)
  Receive Date: 20080411
  Receipt Date: 20071101
  Transmission Date: 20081010
  Serious: No
  Sender: FDA-Public Use
  Company Number: US-ABBOTT-07P-163-0423649-00

PATIENT
  Sex: Male
  Weight: 32.688 kg

DRUGS (1)
  1. DEPAKOTE [Suspect]
     Indication: EPILEPSY
     Route: 048
     Dates: start: 20020701

REACTIONS (5)
  - FALL [None]
  - IMPAIRED HEALING [None]
  - JOINT SPRAIN [None]
  - UPPER LIMB FRACTURE [None]
  - VITAMIN D DECREASED [None]
